FAERS Safety Report 9004569 (Version 1)
Quarter: 2013Q1

REPORT INFORMATION
  Report Type: Spontaneous
  Country: US (occurrence: None)
  Receive Date: 20130103
  Receipt Date: 20130103
  Transmission Date: 20140127
  Serious: Yes (Disabling)
  Sender: FDA-Public Use
  Company Number: None

PATIENT
  Age: 46 Year
  Sex: Female

DRUGS (2)
  1. LEVAQUIN [Suspect]
     Indication: URINARY TRACT INFECTION
     Dosage: 500 MG 500 MG Q 24 HOURS IV DRIP
     Route: 041
     Dates: start: 20120604, end: 20120614
  2. LEVAQUIN [Suspect]
     Indication: PYELONEPHRITIS
     Dosage: 500 MG 500 MG Q 24 HOURS IV DRIP
     Route: 041
     Dates: start: 20120604, end: 20120614

REACTIONS (5)
  - Radial nerve palsy [None]
  - Grip strength decreased [None]
  - Sensory loss [None]
  - Paralysis [None]
  - Tendon rupture [None]
